FAERS Safety Report 8066171-3 (Version None)
Quarter: 2012Q1

REPORT INFORMATION
  Report Type: 
  Country: None (occurrence: None)
  Receive Date: 20120117
  Receipt Date: 20120104
  Transmission Date: 20120608
  Serious: Yes (Other)
  Sender: FDA-Public Use
  Company Number: 2012-ES-0002

PATIENT

DRUGS (1)
  1. FENTANYL [Suspect]
     Indication: BREAKTHROUGH PAIN

REACTIONS (3)
  - DRUG ABUSE [None]
  - DRUG DEPENDENCE [None]
  - SLEEP DISORDER [None]
